FAERS Safety Report 6606558-6 (Version None)
Quarter: 2010Q1

REPORT INFORMATION
  Report Type: 
  Country: None (occurrence: None)
  Receive Date: 20100226
  Receipt Date: 20100215
  Transmission Date: 20100710
  Serious: Yes (Hospitalization, Other)
  Sender: FDA-Public Use
  Company Number: JP-PFIZER INC-2010020701

PATIENT
  Age: 71 Year
  Sex: Male

DRUGS (4)
  1. CORTRIL [Suspect]
     Indication: BLOOD CORTICOTROPHIN DECREASED
     Dosage: FOR 10 DAYS
  2. ALLELOCK [Concomitant]
  3. ATARAX [Concomitant]
  4. GASTER [Concomitant]

REACTIONS (1)
  - MANIA [None]
